FAERS Safety Report 7067811-8 (Version None)
Quarter: 2010Q4

REPORT INFORMATION
  Report Type: 
  Country: None (occurrence: None)
  Receive Date: 20101028
  Receipt Date: 20101020
  Transmission Date: 20110411
  Serious: Yes (Hospitalization)
  Sender: FDA-Public Use
  Company Number: NL-BAXTER-2008BH013094

PATIENT
  Age: 52 Year
  Sex: Male

DRUGS (4)
  1. GAMMAGARD LIQUID [Suspect]
     Indication: NEUROPATHY PERIPHERAL
     Route: 042
     Dates: start: 20081126, end: 20081126
  2. GAMMAGARD LIQUID [Suspect]
     Indication: OFF LABEL USE
     Route: 042
     Dates: start: 20081126, end: 20081126
  3. GAMMAGARD LIQUID [Suspect]
     Route: 042
     Dates: start: 20071227
  4. GAMMAGARD LIQUID [Suspect]
     Route: 042
     Dates: start: 20071227

REACTIONS (3)
  - DYSPHONIA [None]
  - PRURITUS [None]
  - RASH [None]
